FAERS Safety Report 6300601-X (Version None)
Quarter: 2009Q3

REPORT INFORMATION
  Report Type: 
  Country: None (occurrence: None)
  Receive Date: 20090806
  Receipt Date: 20090205
  Transmission Date: 20100115
  Serious: Yes (Death, Hospitalization, Other)
  Sender: FDA-Public Use
  Company Number: US-ABBOTT-08P-163-0485817-00

PATIENT
  Sex: Male

DRUGS (3)
  1. DEPAKOTE ER [Suspect]
     Indication: EPILEPSY
  2. DEPAKOTE ER [Suspect]
  3. DEPAKOTE [Suspect]
     Indication: EPILEPSY

REACTIONS (3)
  - DRUG LEVEL DECREASED [None]
  - HIGH DENSITY LIPOPROTEIN DECREASED [None]
  - PANCREATITIS [None]
